FAERS Safety Report 22168674 (Version 2)
Quarter: 2025Q2

REPORT INFORMATION
  Report Type: Spontaneous
  Country: FR (occurrence: FR)
  Receive Date: 20230403
  Receipt Date: 20250624
  Transmission Date: 20250717
  Serious: Yes (Other)
  Sender: GILEAD
  Company Number: FR-GILEAD-2023-0622502

PATIENT
  Age: 56 Year
  Sex: Male

DRUGS (16)
  1. YESCARTA [Suspect]
     Active Substance: AXICABTAGENE CILOLEUCEL
     Indication: Diffuse large B-cell lymphoma stage II
     Route: 042
     Dates: start: 20200505, end: 20200505
  2. FLUDARABINE [Suspect]
     Active Substance: FLUDARABINE PHOSPHATE
     Indication: Diffuse large B-cell lymphoma stage II
     Route: 065
     Dates: start: 20200430, end: 20200502
  3. FLUDARABINE [Suspect]
     Active Substance: FLUDARABINE PHOSPHATE
     Indication: Bone marrow conditioning regimen
     Route: 065
     Dates: start: 202105
  4. CYCLOPHOSPHAMIDE [Suspect]
     Active Substance: CYCLOPHOSPHAMIDE
     Indication: Bone marrow conditioning regimen
     Route: 065
     Dates: start: 20200430, end: 20200502
  5. CYCLOPHOSPHAMIDE [Suspect]
     Active Substance: CYCLOPHOSPHAMIDE
     Indication: Diffuse large B-cell lymphoma stage II
     Route: 065
     Dates: start: 20210519
  6. CYCLOPHOSPHAMIDE [Suspect]
     Active Substance: CYCLOPHOSPHAMIDE
     Indication: Myelodysplastic syndrome
  7. VINCRISTINE [Suspect]
     Active Substance: VINCRISTINE
     Indication: Diffuse large B-cell lymphoma stage II
     Route: 065
     Dates: start: 2019
  8. CISPLATIN [Suspect]
     Active Substance: CISPLATIN
     Indication: Diffuse large B-cell lymphoma stage II
     Route: 065
  9. DOXORUBICIN [Suspect]
     Active Substance: DOXORUBICIN
     Indication: Diffuse large B-cell lymphoma stage II
     Route: 065
     Dates: start: 2019
  10. METHYLPREDNISOLONE [Suspect]
     Active Substance: METHYLPREDNISOLONE
     Indication: Diffuse large B-cell lymphoma stage II
     Route: 065
     Dates: start: 2020
  11. PREDNISONE [Suspect]
     Active Substance: PREDNISONE
     Indication: Diffuse large B-cell lymphoma stage II
     Route: 065
     Dates: start: 2019
  12. CYTARABINE [Suspect]
     Active Substance: CYTARABINE
     Indication: Diffuse large B-cell lymphoma stage II
     Route: 065
  13. RITUXIMAB [Suspect]
     Active Substance: RITUXIMAB
     Indication: Diffuse large B-cell lymphoma stage II
     Route: 065
     Dates: start: 2019
  14. ETOPOSIDE [Suspect]
     Active Substance: ETOPOSIDE
     Indication: Diffuse large B-cell lymphoma stage II
     Route: 065
     Dates: start: 2020
  15. DEXAMETHASONE [Suspect]
     Active Substance: DEXAMETHASONE
     Indication: Diffuse large B-cell lymphoma stage II
     Route: 065
  16. CISPLATIN\CYTARABINE\ETOPOSIDE\METHYLPREDNISOLONE (ESHAP) [Concomitant]
     Active Substance: CISPLATIN\CYTARABINE\ETOPOSIDE\METHYLPREDNISOLONE (ESHAP)
     Indication: Chemotherapy
     Dates: start: 2020

REACTIONS (3)
  - Myelodysplastic syndrome [Recovered/Resolved]
  - Diffuse large B-cell lymphoma recurrent [Recovered/Resolved]
  - Cytokine release syndrome [Unknown]

NARRATIVE: CASE EVENT DATE: 20200508
